FAERS Safety Report 5932818-8 (Version None)
Quarter: 2008Q4

REPORT INFORMATION
  Report Type: 
  Country: None (occurrence: None)
  Receive Date: 20081027
  Receipt Date: 20081027
  Transmission Date: 20090506
  Serious: No
  Sender: FDA-Public Use
  Company Number: None

PATIENT
  Sex: Male
  Weight: 47.3 kg

DRUGS (8)
  1. CYCLOPHOSPHAMIDE [Suspect]
     Dosage: 1510 MG
  2. DEXAMETHASONE 0.5MG TAB [Suspect]
     Dosage: 80 MG
  3. DOXORUBICIN HYDROCHLORIDE [Suspect]
     Dosage: 75.5 MG
  4. G-CSF (FILGRASTIM, AMGEN) [Suspect]
     Dosage: 4800 MCG
  5. LEUCOVORIN CALCIUM [Suspect]
     Dosage: 160 MG
  6. METHOTREXATE [Suspect]
     Dosage: 2265 MG
  7. RITUXIMAB (M0ABC2B8 ANTI CD2O, CHIMERIC) [Suspect]
     Dosage: 566 MG
  8. VINCRISTINE SULFATE [Suspect]
     Dosage: 1 MG

REACTIONS (1)
  - GAMMA-GLUTAMYLTRANSFERASE INCREASED [None]
